FAERS Safety Report 10166988 (Version 2)
Quarter: 2014Q2

REPORT INFORMATION
  Report Type: Spontaneous
  Country: US (occurrence: US)
  Receive Date: 20140512
  Receipt Date: 20140609
  Transmission Date: 20141212
  Serious: No
  Sender: FDA-Public Use
  Company Number: US-PFIZER INC-2014129654

PATIENT
  Age: 62 Year
  Sex: Male
  Weight: 114.29 kg

DRUGS (6)
  1. LYRICA [Suspect]
     Indication: DIABETIC NEUROPATHY
     Dosage: 150 MG, 2X/DAY
  2. HUMALOG MIX 75/25 [Concomitant]
     Indication: DIABETES MELLITUS
     Dosage: 48 IU IN MORNING AND 30 IU IN NIGHT, 2X/DAY
  3. KLOR-CON [Concomitant]
     Dosage: UNK
  4. CLONAZEPAM [Concomitant]
     Dosage: 1 MG, UNK
  5. HYDROCHLOROTHIAZIDE [Concomitant]
     Dosage: 25 MG, DAILY
  6. FENOFIBRATE [Concomitant]
     Dosage: 54 MG, DAILY

REACTIONS (1)
  - Pain in extremity [Not Recovered/Not Resolved]
